FAERS Safety Report 9894230 (Version 2)
Quarter: 2014Q1

REPORT INFORMATION
  Report Type: Spontaneous
  Country: US (occurrence: US)
  Receive Date: 20140213
  Receipt Date: 20140213
  Transmission Date: 20141002
  Serious: Yes (Hospitalization)
  Sender: FDA-Public Use
  Company Number: US-GLAXOSMITHKLINE-A0802644A

PATIENT
  Age: 45 Year
  Sex: Male

DRUGS (7)
  1. AVANDIA [Suspect]
     Indication: DIABETES MELLITUS
     Dosage: 8MG PER DAY
     Route: 048
     Dates: start: 200410, end: 200701
  2. LIPITOR [Concomitant]
  3. TOPROL [Concomitant]
  4. PLAVIX [Concomitant]
  5. GLUCOPHAGE [Concomitant]
  6. GLUCOTROL [Concomitant]
  7. VASOTEC [Concomitant]

REACTIONS (3)
  - Myocardial infarction [Unknown]
  - Cardiac disorder [Unknown]
  - Cardiovascular disorder [Unknown]
